FAERS Safety Report 26154784 (Version 1)
Quarter: 2025Q4

REPORT INFORMATION
  Report Type: Spontaneous
  Country: GB (occurrence: GB)
  Receive Date: 20251215
  Receipt Date: 20251215
  Transmission Date: 20260118
  Serious: Yes (Disabling, Other)
  Sender: HETERO
  Company Number: None

PATIENT
  Age: 67 Year
  Sex: Female
  Weight: 113 kg

DRUGS (8)
  1. ATORVASTATIN [Suspect]
     Active Substance: ATORVASTATIN
     Indication: Product used for unknown indication
     Dosage: 1 DOSAGE FORM, QD
     Route: 065
     Dates: start: 20230102, end: 20250312
  2. PREDNISOLONE [Concomitant]
     Active Substance: PREDNISOLONE
     Indication: Product used for unknown indication
     Dosage: 50 MILLIGRAM, Q.O.D. (AS PER NEUROL ADVICE TITRATING UP TO MAX 50 MILLIGRAM ALTERNATE DAYS)
     Route: 065
     Dates: start: 20250305, end: 20250424
  3. PREDNISOLONE [Concomitant]
     Active Substance: PREDNISOLONE
     Dosage: 9 MILLIGRAM, QOD (4 TABLETS ALTERNATE DAYS (IN ADDITION TO 5 MILLIGRAM TABLETS TOTAL DOSE 9 MILLIGRA
     Route: 065
     Dates: start: 20250522
  4. PREDNISOLONE [Concomitant]
     Active Substance: PREDNISOLONE
     Dosage: 1 DOSAGE FORM, QOD (ONE TABLET ALTERNATE DAYS)
     Route: 065
  5. APIXABAN [Concomitant]
     Active Substance: APIXABAN
     Indication: Atrial fibrillation
     Dosage: 1 DOSAGE FORM, BID
     Route: 065
     Dates: start: 20250306
  6. ENSTILAR [BETAMETHASONE DIPROPIONATE;CALCIPOTRIOL] [Concomitant]
     Indication: Product used for unknown indication
     Dosage: 120 GRAM, QD (APPLY ONCE A DAY TO THE AFFECTED AREAS. READ THE INFORMATION LEAFLET)
     Route: 061
     Dates: start: 20250312, end: 20250424
  7. TRI MOVATE [Concomitant]
     Indication: Product used for unknown indication
     Dosage: 30 GRAM, BID (APPLY THIN LAYER TWICE DAILY TO AFFECTED AREA FOR ONE WEEK. KEEP AREA AS DRY AS POSSIB
     Route: 061
     Dates: start: 20250402, end: 20250515
  8. SEBCO [Concomitant]
     Indication: Product used for unknown indication
     Dosage: 120 GRAM  (APPLY TO SKIN. LEAVE ON FOR ONE HOUR BEFORE WASHING OFF. APPLY DAILY FOR FIRST 3 -7 DAYS,
     Route: 061
     Dates: start: 20250402, end: 20250515

REACTIONS (3)
  - Myasthenia gravis [Recovering/Resolving]
  - Diplopia [Recovering/Resolving]
  - Mastication disorder [Recovering/Resolving]

NARRATIVE: CASE EVENT DATE: 20230703
